FAERS Safety Report 5919221-1 (Version None)
Quarter: 2008Q4

REPORT INFORMATION
  Report Type: 
  Country: None (occurrence: None)
  Receive Date: 20081014
  Receipt Date: 20081014
  Transmission Date: 20090506
  Serious: Yes (Hospitalization)
  Sender: FDA-Public Use
  Company Number: None

PATIENT
  Sex: Female
  Weight: 73.3013 kg

DRUGS (12)
  1. ROPINIROL XL - SKF 101468 4MG TABLET GSK COMET [Suspect]
     Indication: PARKINSON'S DISEASE
     Dosage: 4MG  ONCE DAILY PO
     Route: 048
     Dates: start: 20080923, end: 20081008
  2. ROPINIROLE XL - SKF 101468 2MG TABLET GSK COMET [Suspect]
     Indication: PARKINSON'S DISEASE
     Dosage: 2MG  ONCE DAILY PO
     Route: 048
     Dates: start: 20080923, end: 20081008
  3. AZILECT [Concomitant]
  4. SINEMET [Suspect]
  5. COMTAN [Concomitant]
  6. LEVOTHYROXINE SODIUM [Concomitant]
  7. RANTIDINE [Concomitant]
  8. VESICARE [Concomitant]
  9. COLACE [Concomitant]
  10. IBUPROFEN [Concomitant]
  11. MULTI-VITAMIN [Concomitant]
  12. MIRAPEX [Concomitant]

REACTIONS (2)
  - DYSPNOEA [None]
  - HAEMOGLOBIN DECREASED [None]
